FAERS Safety Report 17035074 (Version 1)
Quarter: 2019Q4

REPORT INFORMATION
  Report Type: Spontaneous
  Country: GB (occurrence: GB)
  Receive Date: 20191115
  Receipt Date: 20191115
  Transmission Date: 20200122
  Serious: Yes (Hospitalization)
  Sender: FDA-Public Use
  Company Number: GB-TEVA-2019-GB-1137448

PATIENT
  Age: 86 Year
  Sex: Female

DRUGS (9)
  1. HYDROMOL CREAM [Concomitant]
  2. LORAZEPAM. [Concomitant]
     Active Substance: LORAZEPAM
     Dosage: GENERAL PRACTITIONER ASKED TO REVIEW
  3. PARACETAMOL [Concomitant]
     Active Substance: ACETAMINOPHEN
  4. ZOPICLONE [Concomitant]
     Active Substance: ZOPICLONE
     Dosage: GENERAL PRACTITIONER ASKED TO WEAN DOWN
  5. TEMAZEPAM. [Concomitant]
     Active Substance: TEMAZEPAM
     Dosage: STOPPED
  6. LANSOPRAZOLE. [Suspect]
     Active Substance: LANSOPRAZOLE
     Dosage: 30 MILLIGRAM
     Route: 048
  7. DOCUSATE [Concomitant]
     Active Substance: DOCUSATE
  8. MIRTAZAPINE. [Concomitant]
     Active Substance: MIRTAZAPINE
  9. LACTULOSE. [Concomitant]
     Active Substance: LACTULOSE

REACTIONS (2)
  - Fall [Unknown]
  - Fracture [Unknown]
